FAERS Safety Report 10062497 (Version 1)
Quarter: 2014Q2

REPORT INFORMATION
  Report Type: Spontaneous
  Country: US (occurrence: US)
  Receive Date: 20140407
  Receipt Date: 20140407
  Transmission Date: 20141212
  Serious: Yes (Hospitalization)
  Sender: FDA-Public Use
  Company Number: US-CUBIST PHARMACEUTICAL, INC.-2014CBST000480

PATIENT
  Sex: 0

DRUGS (7)
  1. CUBICIN [Suspect]
     Indication: INFECTION
     Dosage: UNK UNK, UNK
     Route: 065
  2. CUBICIN [Suspect]
     Indication: OFF LABEL USE
  3. VANCOMYCIN [Suspect]
     Indication: INFECTION
     Dosage: UNK, UNK
     Route: 042
  4. VANCOMYCIN [Suspect]
     Route: 014
  5. CEFTRIAXONE [Suspect]
     Indication: INFECTION
     Dosage: UNK, UNK
     Route: 042
  6. TRIAMCINOLON                       /00031901/ [Concomitant]
     Indication: ECZEMA
     Dosage: UNK UNK, UNK
     Route: 061
  7. TOBRAMYCIN [Concomitant]
     Indication: INFECTION
     Route: 014

REACTIONS (5)
  - Encephalopathy [Unknown]
  - Cerebrovascular accident [Unknown]
  - Cerebellar infarction [Unknown]
  - Cerebral infarction [Unknown]
  - Drug reaction with eosinophilia and systemic symptoms [Recovering/Resolving]
